FAERS Safety Report 14297938 (Version 1)
Quarter: 2017Q4

REPORT INFORMATION
  Report Type: Spontaneous
  Country: BR (occurrence: BR)
  Receive Date: 20171218
  Receipt Date: 20171218
  Transmission Date: 20180321
  Serious: Yes (Other)
  Sender: FDA-Public Use
  Company Number: BR-TEVA-2017-BR-828043

PATIENT
  Age: 50 Year
  Sex: Female
  Weight: 54 kg

DRUGS (5)
  1. AEROLIN SPRAY [Concomitant]
     Indication: ASTHMA
  2. LITHIUM. [Suspect]
     Active Substance: LITHIUM
     Dosage: 2 DOSAGE FORMS DAILY; 300 MG EACH TABLET
     Dates: start: 20171103
  3. CLONAZEPAM. [Concomitant]
     Active Substance: CLONAZEPAM
     Dosage: 1 DOSAGE FORMS DAILY; 01 TABLET OF 2 MG AT NIGHT
  4. CHLORPROMAZINE HYDROCHLORIDE. [Concomitant]
     Active Substance: CHLORPROMAZINE HYDROCHLORIDE
     Dosage: 2 DOSAGE FORMS DAILY; 02 TABLETS OF 100 MG AT NIGHT (IF NECESSARY, UNTIL 06 TABLETS OF 25 MG PER DAY
  5. SODIUM VALPROATE [Concomitant]
     Active Substance: VALPROATE SODIUM
     Dosage: 1000 MILLIGRAM DAILY;

REACTIONS (3)
  - Pain in extremity [Recovering/Resolving]
  - Drug dependence [Not Recovered/Not Resolved]
  - Peripheral swelling [Recovering/Resolving]

NARRATIVE: CASE EVENT DATE: 20171111
